FAERS Safety Report 22230915 (Version 1)
Quarter: 2023Q2

REPORT INFORMATION
  Report Type: Other
  Country: GB (occurrence: GB)
  Receive Date: 20230420
  Receipt Date: 20230420
  Transmission Date: 20230721
  Serious: Yes (Other)
  Sender: FDA-Public Use
  Company Number: GB-MACLEODS PHARMA EU LTD-MAC2023040823

PATIENT

DRUGS (1)
  1. ARIPIPRAZOLE [Suspect]
     Active Substance: ARIPIPRAZOLE
     Indication: Schizophrenia
     Dosage: 400 MILLIGRAM ONCE A MONTH (INJECTION)
     Route: 065
     Dates: start: 20130606

REACTIONS (4)
  - Gambling disorder [Unknown]
  - Schizophrenia [Not Recovered/Not Resolved]
  - Binge eating [Unknown]
  - Medication error [Unknown]

NARRATIVE: CASE EVENT DATE: 20130901
